FAERS Safety Report 21500540 (Version 1)
Quarter: 2022Q4

REPORT INFORMATION
  Report Type: Spontaneous
  Country: JP (occurrence: JP)
  Receive Date: 20221025
  Receipt Date: 20221025
  Transmission Date: 20230113
  Serious: Yes (Other)
  Sender: FDA-Public Use
  Company Number: JP-JNJFOC-20221042025

PATIENT
  Age: 78 Year
  Sex: Male

DRUGS (3)
  1. HALOMONTH [Suspect]
     Active Substance: HALOPERIDOL DECANOATE
     Indication: Delirium
     Dosage: DOSE UNKNOWN
     Route: 030
  2. BLONANSERIN [Concomitant]
     Active Substance: BLONANSERIN
     Indication: Delirium
     Route: 062
  3. BLONANSERIN [Concomitant]
     Active Substance: BLONANSERIN
     Indication: Delirium
     Dosage: DOSE UNKNOWNGRADUALLY DECREASED
     Route: 062

REACTIONS (3)
  - Pneumonia aspiration [Unknown]
  - Dysphagia [Recovering/Resolving]
  - Off label use [Unknown]
